FAERS Safety Report 18496307 (Version 1)
Quarter: 2020Q4

REPORT INFORMATION
  Report Type: Spontaneous
  Country: US (occurrence: US)
  Receive Date: 20201112
  Receipt Date: 20201112
  Transmission Date: 20210114
  Serious: Yes (Hospitalization)
  Sender: FDA-Public Use
  Company Number: None

PATIENT
  Sex: Male

DRUGS (12)
  1. CARVEDILOL. [Concomitant]
     Active Substance: CARVEDILOL
  2. SPIRONOLACTONE. [Concomitant]
     Active Substance: SPIRONOLACTONE
  3. VIRTUSSIN [Concomitant]
  4. SMZ/TMP [Concomitant]
     Active Substance: SULFAMETHOXAZOLE\TRIMETHOPRIM
  5. LOSARTAN POTASSIUM. [Concomitant]
     Active Substance: LOSARTAN POTASSIUM
  6. ENTECAVIR. [Suspect]
     Active Substance: ENTECAVIR
     Indication: RENAL TRANSPLANT
     Route: 048
     Dates: start: 20190607
  7. PREDNISONE. [Concomitant]
     Active Substance: PREDNISONE
  8. PROGRAF [Concomitant]
     Active Substance: TACROLIMUS
  9. PROLENSA [Concomitant]
     Active Substance: BROMFENAC SODIUM
  10. PREDNISILONE [Concomitant]
  11. MYCOPHENOLATE [Concomitant]
     Active Substance: MYCOPHENOLIC ACID
  12. TACROLIMUS. [Concomitant]
     Active Substance: TACROLIMUS

REACTIONS (3)
  - Dyspnoea [None]
  - Pneumonia [None]
  - Asthenia [None]
